FAERS Safety Report 9791560 (Version 1)
Quarter: 2014Q1

REPORT INFORMATION
  Report Type: Spontaneous
  Country: PT (occurrence: PT)
  Receive Date: 20140101
  Receipt Date: 20140101
  Transmission Date: 20141002
  Serious: Yes (Death, Other)
  Sender: FDA-Public Use
  Company Number: PHHY2013PT150654

PATIENT
  Age: 32 Year
  Sex: Male

DRUGS (8)
  1. PAROXETINE [Suspect]
  2. HALOPERIDOL [Suspect]
  3. OLANZAPINE [Suspect]
  4. QUETIAPINE [Suspect]
  5. FLUOXETINE [Suspect]
  6. BROMAZEPAM [Suspect]
  7. LORAZEPAM [Suspect]
  8. RISPERIDONE [Concomitant]

REACTIONS (5)
  - Toxicity to various agents [Fatal]
  - Completed suicide [Fatal]
  - Acute pulmonary oedema [Unknown]
  - Vascular occlusion [Unknown]
  - Intentional overdose [Unknown]
